FAERS Safety Report 7984169-8 (Version None)
Quarter: 2011Q4

REPORT INFORMATION
  Report Type: 
  Country: None (occurrence: None)
  Receive Date: 20111214
  Receipt Date: 20111129
  Transmission Date: 20120403
  Serious: Yes (Disabling)
  Sender: FDA-Public Use
  Company Number: DK-SEPTODONT-201100229

PATIENT
  Sex: Male

DRUGS (1)
  1. SEPTOCAINE [Suspect]
     Indication: LOCAL ANAESTHESIA
     Dosage: 40 MG/ML+10 MIKROG/ML, DENTAL
     Route: 004
     Dates: start: 20050401

REACTIONS (3)
  - PARAESTHESIA [None]
  - FACIAL PAIN [None]
  - SENSORY DISTURBANCE [None]
